FAERS Safety Report 5172657-1 (Version None)
Quarter: 2006Q4

REPORT INFORMATION
  Report Type: 
  Country: None (occurrence: None)
  Receive Date: 20061205
  Receipt Date: 20061122
  Transmission Date: 20070319
  Serious: Yes (Other)
  Sender: FDA-Public Use
  Company Number: 06-0139PO FU 1

PATIENT
  Age: 51 Year
  Sex: Female

DRUGS (10)
  1. MEFENAMIC ACID [Suspect]
     Indication: DRUG USE FOR UNKNOWN INDICATION
     Dosage: 500 MG, PRN, ORAL
     Route: 048
     Dates: start: 20000101, end: 20061015
  2. MODURETIC 5-50 [Concomitant]
  3. AAS, INFANT (ACETYLSALICYLIC ACID) [Concomitant]
  4. HYDROCHLOROTHIAZIDE [Concomitant]
  5. VENCOUR TRIPLEX (RUTOSIDE/AESCULUS/HIPPOCASTANUM L/ MIROT) [Concomitant]
  6. DAFLON (DIOSMIN) [Concomitant]
  7. BUSCOPAN (SCOPALAMINE N-BUTYLBROMIDE) [Concomitant]
  8. FELDENE (PIROXICAN) [Concomitant]
  9. SLOW-K [Concomitant]
  10. BENERVA (TIAMIN HYDROCHLORIDE) [Concomitant]

REACTIONS (4)
  - DRUG HYPERSENSITIVITY [None]
  - DYSPHONIA [None]
  - LARYNGEAL OEDEMA [None]
  - RASH GENERALISED [None]
